FAERS Safety Report 14538211 (Version 1)
Quarter: 2018Q1

REPORT INFORMATION
  Report Type: Spontaneous
  Country: CA (occurrence: CA)
  Receive Date: 20180216
  Receipt Date: 20180216
  Transmission Date: 20180509
  Serious: Yes (Other)
  Sender: FDA-Public Use
  Company Number: CA-ROCHE-GNE307166

PATIENT
  Sex: Female

DRUGS (1)
  1. XOLAIR [Suspect]
     Active Substance: OMALIZUMAB
     Indication: ASTHMA
     Dosage: 300 MG, 1/MONTH
     Route: 058
     Dates: start: 20090330

REACTIONS (8)
  - Respiratory fume inhalation disorder [Unknown]
  - Asthma [Unknown]
  - Atelectasis [Unknown]
  - Nasopharyngitis [Unknown]
  - Bronchitis [Unknown]
  - Dysphonia [Unknown]
  - Dust allergy [Unknown]
  - Productive cough [Unknown]
